FAERS Safety Report 7764783-5 (Version None)
Quarter: 2011Q3

REPORT INFORMATION
  Report Type: 
  Country: None (occurrence: None)
  Receive Date: 20110921
  Receipt Date: 20110921
  Transmission Date: 20111222
  Serious: No
  Sender: FDA-Public Use
  Company Number: None

PATIENT

DRUGS (1)
  1. ZICAM (OTC) [Suspect]
     Dosage: ONE SPRAY EACH NOSTROL
     Dates: start: 20060101, end: 20091220

REACTIONS (1)
  - ANOSMIA [None]
